FAERS Safety Report 7303953-7 (Version None)
Quarter: 2011Q1

REPORT INFORMATION
  Report Type: 
  Country: None (occurrence: None)
  Receive Date: 20110221
  Receipt Date: 20110217
  Transmission Date: 20110831
  Serious: Yes (Life-Threatening, Hospitalization)
  Sender: FDA-Public Use
  Company Number: ES-ROCHE-760402

PATIENT
  Age: 48 Year
  Sex: Male

DRUGS (5)
  1. ZYLORIC [Concomitant]
     Indication: GOUT
     Dosage: FREQUENCY: DAILY
     Route: 048
     Dates: start: 20071001
  2. MYCOPHENOLATE MOFETIL [Suspect]
     Indication: HEART TRANSPLANT
     Dosage: FREQUENCY: DAILY
     Route: 048
     Dates: start: 20000201, end: 20091122
  3. LOSARTAN [Concomitant]
     Indication: HYPERTENSION
     Dosage: FREQUENCY: DAILY
     Route: 048
     Dates: start: 20090501
  4. TACROLIMUS [Interacting]
     Indication: HEART TRANSPLANT
     Dosage: FREQUENCY: DAILY
     Route: 048
     Dates: start: 20080901
  5. TROMALYT [Concomitant]
     Dosage: FREQUENCY: DAILY, START DATE: LONG TERM
     Route: 048

REACTIONS (1)
  - PNEUMONITIS [None]
